FAERS Safety Report 16195495 (Version 3)
Quarter: 2019Q2

REPORT INFORMATION
  Report Type: Spontaneous
  Country: US (occurrence: US)
  Receive Date: 20190415
  Receipt Date: 20190618
  Transmission Date: 20190711
  Serious: No
  Sender: FDA-Public Use
  Company Number: US-GW PHARMA-201902USGW0314

PATIENT

DRUGS (7)
  1. EPIDIOLEX [Suspect]
     Active Substance: CANNABIDIOL
     Indication: EPILEPSY
     Dosage: UNK
     Route: 048
     Dates: start: 20181208
  2. ONFI [Suspect]
     Active Substance: CLOBAZAM
     Dosage: 55 MG, UNK
     Route: 065
     Dates: start: 20190104
  3. DEPAKOTE [Concomitant]
     Active Substance: DIVALPROEX SODIUM
     Indication: EPILEPSY
     Dosage: UNK
     Route: 065
  4. LAMICTAL [Concomitant]
     Active Substance: LAMOTRIGINE
     Indication: EPILEPSY
     Dosage: UNK
     Route: 065
  5. VIMPAT [Concomitant]
     Active Substance: LACOSAMIDE
     Indication: EPILEPSY
     Dosage: UNK
     Route: 065
  6. ONFI [Suspect]
     Active Substance: CLOBAZAM
     Indication: EPILEPSY
     Dosage: 70 MG, UNK
     Route: 065
  7. DILANTIN [Concomitant]
     Active Substance: PHENYTOIN
     Indication: EPILEPSY
     Route: 065

REACTIONS (3)
  - Cognitive disorder [Unknown]
  - Sedation [Unknown]
  - Drug level increased [Unknown]
